FAERS Safety Report 5025877-0 (Version None)
Quarter: 2006Q2

REPORT INFORMATION
  Report Type: 
  Country: None (occurrence: None)
  Receive Date: 20060427
  Receipt Date: 20051021
  Transmission Date: 20061013
  Serious: Yes (Hospitalization, Other)
  Sender: FDA-Public Use
  Company Number: 2005082494

PATIENT
  Age: 8 Month
  Sex: Male

DRUGS (1)
  1. ZITHROMAX [Suspect]
     Indication: EAR INFECTION
     Dosage: ORAL
     Route: 048
     Dates: start: 20011101

REACTIONS (5)
  - ANAPHYLACTIC REACTION [None]
  - DEHYDRATION [None]
  - FLATULENCE [None]
  - URTICARIA [None]
  - VOMITING [None]
